FAERS Safety Report 6803381-4 (Version None)
Quarter: 2010Q2

REPORT INFORMATION
  Report Type: 
  Country: None (occurrence: None)
  Receive Date: 20100628
  Receipt Date: 20100616
  Transmission Date: 20101027
  Serious: Yes (Hospitalization)
  Sender: FDA-Public Use
  Company Number: FI-PFIZER INC-2010075625

PATIENT
  Age: 44 Year
  Sex: Female

DRUGS (2)
  1. LYRICA [Suspect]
     Indication: NEURALGIA
     Dosage: 75 MG, UNK
     Route: 048
  2. LYRICA [Suspect]
     Dosage: 450 MG, DAILY

REACTIONS (3)
  - APHASIA [None]
  - EYE MOVEMENT DISORDER [None]
  - SENSORY LOSS [None]
